FAERS Safety Report 18243080 (Version 1)
Quarter: 2020Q3

REPORT INFORMATION
  Report Type: Spontaneous
  Country: CA (occurrence: CA)
  Receive Date: 20200908
  Receipt Date: 20200908
  Transmission Date: 20201103
  Serious: Yes (Hospitalization, Other)
  Sender: FDA-Public Use
  Company Number: CA-FERRINGPH-2020FE06074

PATIENT

DRUGS (2)
  1. OXYTOCIN. [Concomitant]
     Active Substance: OXYTOCIN
     Indication: PRODUCT USED FOR UNKNOWN INDICATION
  2. CERVIDIL [Suspect]
     Active Substance: DINOPROSTONE
     Indication: LABOUR INDUCTION
     Dosage: 10 MG, ONCE/SINGLE
     Route: 064

REACTIONS (1)
  - Neonatal respiratory distress syndrome [Recovered/Resolved]
